FAERS Safety Report 5506381-X (Version None)
Quarter: 2007Q4

REPORT INFORMATION
  Report Type: 
  Country: None (occurrence: None)
  Receive Date: 20071101
  Receipt Date: 20071019
  Transmission Date: 20080405
  Serious: Yes (Death)
  Sender: FDA-Public Use
  Company Number: 2007JP004843

PATIENT
  Age: 77 Year
  Sex: Male
  Weight: 65 kg

DRUGS (10)
  1. TACROLIMUS [Suspect]
     Indication: RHEUMATOID ARTHRITIS
     Dosage: 1.5 MG, /D, ORAL; 2 MG, /D, ORAL; 3 MG, /D, ORAL
     Route: 048
     Dates: start: 20060530, end: 20060601
  2. TACROLIMUS [Suspect]
     Indication: RHEUMATOID ARTHRITIS
     Dosage: 1.5 MG, /D, ORAL; 2 MG, /D, ORAL; 3 MG, /D, ORAL
     Route: 048
     Dates: start: 20060602, end: 20060608
  3. TACROLIMUS [Suspect]
     Indication: RHEUMATOID ARTHRITIS
     Dosage: 1.5 MG, /D, ORAL; 2 MG, /D, ORAL; 3 MG, /D, ORAL
     Route: 048
     Dates: start: 20060609, end: 20060701
  4. PREDNISONE [Concomitant]
  5. SIGMART (NICORANDIL) [Concomitant]
  6. ASPIRIN [Concomitant]
  7. CARVEDILOL [Concomitant]
  8. CANDESARTAN CILEXETIL [Concomitant]
  9. MAGLAX (MAGNESIUM OXIDE) [Concomitant]
  10. RABEPRAZOLE SODIUM [Concomitant]

REACTIONS (3)
  - CONDITION AGGRAVATED [None]
  - INFECTION [None]
  - INTERSTITIAL LUNG DISEASE [None]
